FAERS Safety Report 20220584 (Version 2)
Quarter: 2022Q1

REPORT INFORMATION
  Report Type: Report from Study
  Country: US (occurrence: US)
  Receive Date: 20211223
  Receipt Date: 20220107
  Transmission Date: 20220423
  Serious: Yes (Hospitalization)
  Sender: FDA-Public Use
  Company Number: US-ABBVIE-21K-163-4208705-00

PATIENT
  Age: 57 Year
  Sex: Male

DRUGS (4)
  1. DUOPA [Suspect]
     Active Substance: CARBIDOPA\LEVODOPA
     Indication: Parkinson^s disease
     Route: 050
     Dates: start: 202103
  2. DUOPA [Suspect]
     Active Substance: CARBIDOPA\LEVODOPA
  3. ESCITALOPRAM [Concomitant]
     Active Substance: ESCITALOPRAM OXALATE
     Indication: Anxiety
  4. JANSSEN COVID-19 VACCINE [Concomitant]
     Active Substance: AD26.COV2.S
     Indication: COVID-19 immunisation
     Route: 030
     Dates: start: 20210408, end: 20210408

REACTIONS (13)
  - Device occlusion [Recovered/Resolved]
  - Lethargy [Not Recovered/Not Resolved]
  - Urinary retention [Not Recovered/Not Resolved]
  - Paranoia [Not Recovered/Not Resolved]
  - Dementia [Not Recovered/Not Resolved]
  - Pulmonary mass [Not Recovered/Not Resolved]
  - Device connection issue [Recovered/Resolved]
  - Device occlusion [Recovered/Resolved]
  - Device power source issue [Not Recovered/Not Resolved]
  - Device issue [Not Recovered/Not Resolved]
  - Device occlusion [Unknown]
  - Road traffic accident [Unknown]
  - SARS-CoV-2 test positive [Unknown]

NARRATIVE: CASE EVENT DATE: 20211101
